FAERS Safety Report 6918170-X (Version None)
Quarter: 2010Q3

REPORT INFORMATION
  Report Type: 
  Country: None (occurrence: None)
  Receive Date: 20100806
  Receipt Date: 20100414
  Transmission Date: 20110219
  Serious: Yes (Death, Disabling, Other)
  Sender: FDA-Public Use
  Company Number: APP201000271

PATIENT
  Sex: Female

DRUGS (1)
  1. HEPARIN SODIUM INJECTION [Suspect]
     Indication: HAEMODIALYSIS
     Dates: start: 20070401

REACTIONS (9)
  - DEEP VEIN THROMBOSIS [None]
  - EXTREMITY NECROSIS [None]
  - GANGRENE [None]
  - HEPARIN-INDUCED THROMBOCYTOPENIA [None]
  - INFECTION [None]
  - PAIN [None]
  - PERIPHERAL ISCHAEMIA [None]
  - SKIN DISCOLOURATION [None]
  - THROMBOSIS [None]
